FAERS Safety Report 4382668-1 (Version None)
Quarter: 2004Q2

REPORT INFORMATION
  Report Type: 
  Country: None (occurrence: None)
  Receive Date: 20040617
  Receipt Date: 20040610
  Transmission Date: 20050107
  Serious: Yes (Hospitalization)
  Sender: FDA-Public Use
  Company Number: 200411935GDS

PATIENT
  Age: 91 Year
  Sex: Female

DRUGS (3)
  1. GLUCOBAY [Suspect]
     Indication: DIABETES MELLITUS
     Dates: end: 20040218
  2. MINODIAB [Concomitant]
  3. ALOPRESIN [Concomitant]

REACTIONS (1)
  - VOMITING [None]
